FAERS Safety Report 7321878-8 (Version None)
Quarter: 2011Q1

REPORT INFORMATION
  Report Type: 
  Country: None (occurrence: None)
  Receive Date: 20110228
  Receipt Date: 20110215
  Transmission Date: 20110831
  Serious: Yes (Other)
  Sender: FDA-Public Use
  Company Number: US-ELI_LILLY_AND_COMPANY-US201101001680

PATIENT
  Sex: Female
  Weight: 49.433 kg

DRUGS (2)
  1. GEMZAR [Suspect]
     Indication: OVARIAN CANCER
     Dosage: 1500 MG, UNK
     Route: 042
     Dates: start: 20100423, end: 20101203
  2. GEMZAR [Suspect]
     Dosage: 858 MG, UNK
     Route: 042

REACTIONS (5)
  - ADHESION [None]
  - FLATULENCE [None]
  - PLEURAL EFFUSION [None]
  - NEOPLASM MALIGNANT [None]
  - DEEP VEIN THROMBOSIS [None]
